FAERS Safety Report 10548180 (Version 1)
Quarter: 2014Q4

REPORT INFORMATION
  Report Type: Spontaneous
  Country: US (occurrence: None)
  Receive Date: 20141027
  Receipt Date: 20141027
  Transmission Date: 20150529
  Serious: Yes (Disabling)
  Sender: FDA-Public Use
  Company Number: None

PATIENT
  Age: 49 Year
  Weight: 83.46 kg

DRUGS (1)
  1. OXYCONTIN [Suspect]
     Active Substance: OXYCODONE HYDROCHLORIDE
     Dosage: ONCE EVERY 12 HOURS TWICE DAILY TAKEN BY MOUTH
     Route: 048
     Dates: start: 20110131

REACTIONS (11)
  - Constipation [None]
  - Product physical issue [None]
  - Nervousness [None]
  - Drug effect decreased [None]
  - Product quality issue [None]
  - Nausea [None]
  - Hyperhidrosis [None]
  - Lethargy [None]
  - Malaise [None]
  - Quality of life decreased [None]
  - Pain [None]

NARRATIVE: CASE EVENT DATE: 20110112
